FAERS Safety Report 13615253 (Version 1)
Quarter: 2017Q2

REPORT INFORMATION
  Report Type: Spontaneous
  Country: US (occurrence: US)
  Receive Date: 20170606
  Receipt Date: 20170606
  Transmission Date: 20170830
  Serious: No
  Sender: FDA-Public Use
  Company Number: US-TEVA-772907USA

PATIENT
  Age: 33 Year
  Sex: Male
  Weight: 136.2 kg

DRUGS (1)
  1. PROVIGIL [Suspect]
     Active Substance: MODAFINIL
     Indication: SLEEP APNOEA SYNDROME
     Dosage: 200 MILLIGRAM DAILY;

REACTIONS (2)
  - Lethargy [Not Recovered/Not Resolved]
  - Opiates positive [Unknown]

NARRATIVE: CASE EVENT DATE: 20170523
